FAERS Safety Report 18941672 (Version 1)
Quarter: 2021Q1

REPORT INFORMATION
  Report Type: Report from Study
  Country: US (occurrence: US)
  Receive Date: 20210225
  Receipt Date: 20210225
  Transmission Date: 20210420
  Serious: Yes (Other)
  Sender: FDA-Public Use
  Company Number: US-ASTELLAS-2020US042508

PATIENT
  Age: 78 Year
  Sex: Male

DRUGS (4)
  1. ENZALUTAMIDE [Interacting]
     Active Substance: ENZALUTAMIDE
     Route: 048
     Dates: start: 20210114
  2. PLAVIX [Interacting]
     Active Substance: CLOPIDOGREL BISULFATE
     Indication: PRODUCT USED FOR UNKNOWN INDICATION
     Dosage: UNK UNK, UNKNOWN FREQ.
     Route: 065
  3. ENZALUTAMIDE [Interacting]
     Active Substance: ENZALUTAMIDE
     Route: 048
     Dates: end: 20210206
  4. ENZALUTAMIDE [Suspect]
     Active Substance: ENZALUTAMIDE
     Indication: PROSTATE CANCER
     Route: 048
     Dates: start: 20201006

REACTIONS (2)
  - Drug interaction [Unknown]
  - Cardiac disorder [Recovering/Resolving]

NARRATIVE: CASE EVENT DATE: 20210114
